FAERS Safety Report 12804144 (Version 2)
Quarter: 2016Q4

REPORT INFORMATION
  Report Type: Spontaneous
  Country: US (occurrence: US)
  Receive Date: 20161003
  Receipt Date: 20161013
  Transmission Date: 20170207
  Serious: Yes (Other)
  Sender: FDA-Public Use
  Company Number: US-SAOL THERAPEUTICS-2016SAO00744

PATIENT
  Age: 38 Year
  Sex: Male

DRUGS (1)
  1. LIORESAL [Suspect]
     Active Substance: BACLOFEN
     Dosage: UNK

REACTIONS (2)
  - Medical device site injury [Recovered/Resolved]
  - Medical device site erosion [Recovered/Resolved]

NARRATIVE: CASE EVENT DATE: 20160912
